FAERS Safety Report 22285938 (Version 1)
Quarter: 2023Q2

REPORT INFORMATION
  Report Type: Spontaneous
  Country: GB (occurrence: GB)
  Receive Date: 20230505
  Receipt Date: 20230505
  Transmission Date: 20230721
  Serious: Yes (Hospitalization)
  Sender: FDA-Public Use
  Company Number: GB-ROCHE-3332913

PATIENT

DRUGS (7)
  1. BENDAMUSTINE [Suspect]
     Active Substance: BENDAMUSTINE
     Indication: Follicular lymphoma
     Dosage: MOST RECENT DOSE RECEIVED ON 24/JUN/2022
     Route: 065
     Dates: start: 20220323
  2. CYCLOPHOSPHAMIDE [Suspect]
     Active Substance: CYCLOPHOSPHAMIDE
     Indication: Follicular lymphoma
     Dosage: MOST RECENT DOSE RECEIVED ON 24/JUN/2022
     Route: 065
     Dates: start: 20220323
  3. PREDNISONE [Suspect]
     Active Substance: PREDNISONE
     Indication: Follicular lymphoma
     Dosage: MOST RECENT DOSE RECEIVED ON 24/JUN/2022, CYCLE 3
     Route: 065
     Dates: start: 20220323
  4. RITUXIMAB [Suspect]
     Active Substance: RITUXIMAB
     Indication: Follicular lymphoma
     Dosage: MOST RECENT DOSE RECEIVED ON 24/JUN/2022
     Route: 065
     Dates: start: 20220323
  5. VINCRISTINE [Suspect]
     Active Substance: VINCRISTINE
     Indication: Follicular lymphoma
     Dosage: MOST RECENT DOSE RECEIVED ON 24/JUN/2022
     Route: 065
     Dates: start: 20220323
  6. ONDANSETRON [Concomitant]
     Active Substance: ONDANSETRON
     Indication: Nausea
     Dosage: 8 MG
     Route: 042
     Dates: start: 20220703
  7. ACETAMINOPHEN [Concomitant]
     Active Substance: ACETAMINOPHEN
     Indication: Pain
     Dosage: 1 G
     Route: 042
     Dates: start: 20220703

REACTIONS (1)
  - Abdominal pain [Not Recovered/Not Resolved]

NARRATIVE: CASE EVENT DATE: 20220630
